FAERS Safety Report 8585074-9 (Version None)
Quarter: 2012Q2

REPORT INFORMATION
  Report Type: 
  Country: None (occurrence: None)
  Receive Date: 20120423
  Receipt Date: 20091208
  Transmission Date: 20120825
  Serious: Yes (Disabling, Other)
  Sender: FDA-Public Use
  Company Number: PHHY2008US26528

PATIENT
  Sex: Female

DRUGS (1)
  1. EXJADE [Suspect]
     Indication: MYELODYSPLASTIC SYNDROME
     Dosage: 1000 MG/DAY, ORAL
     Route: 048
     Dates: start: 20070419, end: 20090616

REACTIONS (5)
  - GASTRIC ULCER [None]
  - DYSPEPSIA [None]
  - ABDOMINAL PAIN UPPER [None]
  - INSOMNIA [None]
  - GASTRITIS [None]
